FAERS Safety Report 13011213 (Version 4)
Quarter: 2017Q1

REPORT INFORMATION
  Report Type: Spontaneous
  Country: BR (occurrence: BR)
  Receive Date: 20161208
  Receipt Date: 20170313
  Transmission Date: 20170428
  Serious: Yes (Other)
  Sender: FDA-Public Use
  Company Number: BR-AMGEN-BRASP2016128592

PATIENT
  Age: 65 Year
  Sex: Female

DRUGS (3)
  1. ENBREL [Suspect]
     Active Substance: ETANERCEPT
     Indication: ARTHRALGIA
     Dosage: 50 MG, WEEKLY
     Route: 058
     Dates: start: 201605
  2. ENBREL [Suspect]
     Active Substance: ETANERCEPT
     Dosage: 50 MG, WEEKLY
     Route: 058
     Dates: start: 201606
  3. LEFLUNOMIDE. [Concomitant]
     Active Substance: LEFLUNOMIDE
     Dosage: UNK

REACTIONS (19)
  - Meningioma [Unknown]
  - Osteoarthritis [Unknown]
  - Cerebral disorder [Unknown]
  - Pain in extremity [Unknown]
  - Incorrect route of drug administration [Recovered/Resolved]
  - Drug ineffective [Unknown]
  - Injection site haemorrhage [Unknown]
  - Injection site discolouration [Unknown]
  - Haemorrhage [Unknown]
  - Vertigo [Unknown]
  - Pain [Unknown]
  - Ingrowing nail [Unknown]
  - Incorrect product storage [Recovered/Resolved]
  - Labyrinthitis [Unknown]
  - Asthenia [Unknown]
  - Drug administration error [Recovered/Resolved]
  - Chikungunya virus infection [Not Recovered/Not Resolved]
  - Injection site pain [Recovered/Resolved]
  - Feeling cold [Unknown]

NARRATIVE: CASE EVENT DATE: 2016
